FAERS Safety Report 10073144 (Version 1)
Quarter: 2014Q2

REPORT INFORMATION
  Report Type: Report from Study
  Country: US (occurrence: US)
  Receive Date: 20140411
  Receipt Date: 20140411
  Transmission Date: 20141212
  Serious: Yes (Hospitalization)
  Sender: FDA-Public Use
  Company Number: PHEH2014US007086

PATIENT
  Sex: Female
  Weight: 47.62 kg

DRUGS (1)
  1. TOBI PODHALER [Suspect]
     Indication: CYSTIC FIBROSIS
     Dosage: 112 MG, BID
     Route: 055

REACTIONS (4)
  - Gastrointestinal obstruction [Recovering/Resolving]
  - Viral infection [Recovering/Resolving]
  - Malaise [Recovering/Resolving]
  - Lung disorder [Recovering/Resolving]
